FAERS Safety Report 14788972 (Version 1)
Quarter: 2018Q2

REPORT INFORMATION
  Report Type: Spontaneous
  Country: US (occurrence: US)
  Receive Date: 20180423
  Receipt Date: 20180423
  Transmission Date: 20180711
  Serious: No
  Sender: FDA-Public Use
  Company Number: US-009507513-1804USA000335

PATIENT
  Age: 16 Year
  Sex: Female
  Weight: 63.49 kg

DRUGS (2)
  1. NEXPLANON [Suspect]
     Active Substance: ETONOGESTREL
     Indication: CONTRACEPTION
     Dosage: 2 YEAR IMPLANT, LEFT ARM
     Route: 059
     Dates: start: 20171011
  2. NEXPLANON [Suspect]
     Active Substance: ETONOGESTREL
     Indication: MENSTRUAL CYCLE MANAGEMENT

REACTIONS (5)
  - Implant site pruritus [Unknown]
  - Vaginal discharge [Unknown]
  - Drug prescribing error [Unknown]
  - Product use in unapproved indication [Unknown]
  - Implant site mass [Unknown]

NARRATIVE: CASE EVENT DATE: 20171011
